FAERS Safety Report 9257845 (Version 1)
Quarter: 2013Q1

REPORT INFORMATION
  Report Type: Spontaneous
  Country: US (occurrence: None)
  Receive Date: 20121212
  Receipt Date: 20121212
  Transmission Date: 20140127
  Serious: No
  Sender: FDA-Public Use
  Company Number: 1209USA000040

PATIENT
  Age: 49 None
  Sex: Male

DRUGS (3)
  1. PEG-INTRON [Suspect]
     Indication: HEPATITIS C
     Dates: start: 20120319
  2. REBETOL [Suspect]
     Indication: HEPATITIS C
     Dates: start: 20120319
  3. VICTRELIS [Suspect]
     Indication: HEPATITIS C
     Dates: start: 20120416

REACTIONS (3)
  - Laboratory test abnormal [None]
  - Alopecia [None]
  - Nausea [None]
